FAERS Safety Report 7527966-5 (Version None)
Quarter: 2011Q2

REPORT INFORMATION
  Report Type: 
  Country: None (occurrence: None)
  Receive Date: 20110607
  Receipt Date: 20040305
  Transmission Date: 20111010
  Serious: Yes (Hospitalization)
  Sender: FDA-Public Use
  Company Number: PHHO2004JP01940

PATIENT
  Age: 63 Year
  Sex: Male

DRUGS (3)
  1. GLEEVEC [Suspect]
     Indication: CHRONIC MYELOID LEUKAEMIA
     Dosage: 400 MG, QD
     Route: 048
     Dates: start: 20030429, end: 20030902
  2. GLEEVEC [Suspect]
     Dosage: 400 MG, QD
     Route: 048
     Dates: start: 20030905
  3. GLEEVEC [Suspect]
     Dosage: 400 MG, QD
     Route: 048
     Dates: start: 20040219

REACTIONS (6)
  - ABDOMINAL PAIN LOWER [None]
  - APPENDICITIS [None]
  - ABDOMINAL ABSCESS [None]
  - PERITONITIS [None]
  - ABDOMINAL PAIN UPPER [None]
  - PYREXIA [None]
